FAERS Safety Report 7526499-X (Version None)
Quarter: 2011Q2

REPORT INFORMATION
  Report Type: 
  Country: None (occurrence: None)
  Receive Date: 20110606
  Receipt Date: 20110523
  Transmission Date: 20111010
  Serious: Yes (Other)
  Sender: FDA-Public Use
  Company Number: US-JNJFOC-20110510487

PATIENT
  Sex: Female

DRUGS (1)
  1. REMICADE [Suspect]
     Indication: CROHN'S DISEASE
     Dosage: THE PATIENT TOOK REMICADE FOR QUITE A FEW YEARS
     Route: 042

REACTIONS (5)
  - MUSCLE SPASMS [None]
  - ABDOMINAL DISTENSION [None]
  - GENERALISED OEDEMA [None]
  - WEIGHT INCREASED [None]
  - INFUSION RELATED REACTION [None]
